FAERS Safety Report 5280367-5 (Version None)
Quarter: 2007Q1

REPORT INFORMATION
  Report Type: 
  Country: None (occurrence: None)
  Receive Date: 20070326
  Receipt Date: 20070326
  Transmission Date: 20070707
  Serious: Yes (Life-Threatening)
  Sender: FDA-Public Use
  Company Number: None

PATIENT
  Age: 66 Year
  Sex: Female
  Weight: 58.9676 kg

DRUGS (2)
  1. SULFAMETH./TRIMEPTHOPRIM 800/160 LANNETT [Suspect]
     Indication: STAPHYLOCOCCAL INFECTION
     Dosage: INE TABLET TWICE DAILY PO
     Route: 048
     Dates: start: 20070213, end: 20070307
  2. SULFAMETH./TRIMEPTHOPRIM 800/160 LANNETT [Suspect]
     Indication: SURGERY
     Dosage: INE TABLET TWICE DAILY PO
     Route: 048
     Dates: start: 20070213, end: 20070307

REACTIONS (7)
  - AMNESIA [None]
  - BLISTER [None]
  - DELUSION [None]
  - FATIGUE [None]
  - PULMONARY CONGESTION [None]
  - RASH GENERALISED [None]
  - URTICARIA [None]
